FAERS Safety Report 24696147 (Version 1)
Quarter: 2024Q4

REPORT INFORMATION
  Report Type: Spontaneous
  Country: US (occurrence: US)
  Receive Date: 20241204
  Receipt Date: 20241204
  Transmission Date: 20250115
  Serious: Yes (Other)
  Sender: MYLAN
  Company Number: US-MYLANLABS-2024M1106435

PATIENT
  Age: 70 Year
  Sex: Female

DRUGS (4)
  1. MAGNESIUM [Suspect]
     Active Substance: MAGNESIUM
     Indication: Hypomagnesaemia
     Dosage: UNK
     Route: 048
  2. MAGNESIUM SULFATE [Suspect]
     Active Substance: MAGNESIUM SULFATE
     Indication: Hypomagnesaemia
     Dosage: 4 GRAM (EVERY 4 WEEK) {IV INFUSION OF?MAGNESIUM?4G/4 WEEK}
     Route: 042
  3. MAGNESIUM SULFATE [Suspect]
     Active Substance: MAGNESIUM SULFATE
     Dosage: 4 GRAM, QW (MAGNESIUM?WAS INCREASED TO 4G WEEKLY FOR 4 WEEKS)
     Route: 042
  4. MAGNESIUM SULFATE [Suspect]
     Active Substance: MAGNESIUM SULFATE
     Dosage: 4 GRAM, BIWEEKLY (MAINTENANCE AT 4G BIWEEKLY)
     Route: 042

REACTIONS (1)
  - Drug ineffective [Unknown]
